APPROVED DRUG PRODUCT: EPITOL
Active Ingredient: CARBAMAZEPINE
Strength: 200MG
Dosage Form/Route: TABLET;ORAL
Application: A070541 | Product #001 | TE Code: AB
Applicant: TEVA PHARMACEUTICALS USA INC
Approved: Sep 17, 1986 | RLD: No | RS: No | Type: RX